FAERS Safety Report 23172577 (Version 2)
Quarter: 2023Q4

REPORT INFORMATION
  Report Type: Spontaneous
  Country: US (occurrence: US)
  Receive Date: 20231110
  Receipt Date: 20231113
  Transmission Date: 20240109
  Serious: No
  Sender: FDA-Public Use
  Company Number: US-JNJFOC-20231126607

PATIENT
  Sex: Female

DRUGS (1)
  1. REMICADE [Suspect]
     Active Substance: INFLIXIMAB
     Indication: Product used for unknown indication
     Route: 041

REACTIONS (7)
  - Arthralgia [Unknown]
  - Headache [Unknown]
  - Exposure during pregnancy [Not Recovered/Not Resolved]
  - Product administration error [Unknown]
  - Hypoaesthesia [Unknown]
  - Swelling face [Recovered/Resolved]
  - Epistaxis [Unknown]

NARRATIVE: CASE EVENT DATE: 20230101
